FAERS Safety Report 6344783-2 (Version None)
Quarter: 2009Q3

REPORT INFORMATION
  Report Type: 
  Country: None (occurrence: None)
  Receive Date: 20090904
  Receipt Date: 20090819
  Transmission Date: 20100115
  Serious: Yes (Other)
  Sender: FDA-Public Use
  Company Number: 2009S1002730

PATIENT
  Age: 59 Year
  Sex: Female
  Weight: 79.3795 kg

DRUGS (8)
  1. PHOSPHOSODA FLAVOR NOT SPECIFIED [Suspect]
     Indication: COLONOSCOPY
     Dosage: PO
     Route: 048
     Dates: start: 20031111, end: 20031111
  2. E-VITAMIN [Concomitant]
  3. VITAMIN B COMPLEX CAP [Concomitant]
  4. ONE A DAY [Concomitant]
  5. CALTRATE [Concomitant]
  6. SOY ISOFLAVONES [Concomitant]
  7. PREMARIN [Concomitant]
  8. ADVIL [Concomitant]

REACTIONS (10)
  - ANAEMIA [None]
  - DIARRHOEA [None]
  - DYSGEUSIA [None]
  - GLOMERULONEPHRITIS [None]
  - HEADACHE [None]
  - HYPERTENSION [None]
  - HYPOVOLAEMIA [None]
  - NAUSEA [None]
  - OBSTRUCTION [None]
  - RENAL FAILURE CHRONIC [None]
